FAERS Safety Report 8171114-8 (Version None)
Quarter: 2012Q1

REPORT INFORMATION
  Report Type: 
  Country: None (occurrence: None)
  Receive Date: 20120228
  Receipt Date: 20120220
  Transmission Date: 20120608
  Serious: Yes (Hospitalization, Other)
  Sender: FDA-Public Use
  Company Number: DE-ABBOTT-11P-062-0715709-00

PATIENT
  Sex: Male

DRUGS (8)
  1. HUMIRA [Suspect]
     Indication: RHEUMATOID ARTHRITIS
     Route: 058
     Dates: start: 20100201, end: 20101101
  2. CICLOSPORIN A(C.A) [Concomitant]
     Dates: start: 20110327
  3. HUMIRA [Suspect]
     Dates: end: 20111027
  4. RITUXIMAB [Concomitant]
     Indication: PRODUCT USED FOR UNKNOWN INDICATION
     Dates: start: 20120124
  5. METHOTREXATE [Concomitant]
     Indication: RHEUMATOID ARTHRITIS
     Route: 048
     Dates: start: 20100223, end: 20110220
  6. CICLOSPORIN A(C.A) [Concomitant]
     Dates: start: 20100826
  7. PREDNISOLONE [Concomitant]
     Indication: RHEUMATOID ARTHRITIS
     Dosage: 7.5MG DAILY
     Route: 048
     Dates: start: 19920101
  8. CICLOSPORIN A(C.A) [Concomitant]
     Indication: RHEUMATOID ARTHRITIS
     Dosage: 150MG DAILY
     Route: 048
     Dates: start: 20100521, end: 20110101

REACTIONS (4)
  - JOINT STIFFNESS [None]
  - DRUG INEFFECTIVE [None]
  - OSTEOARTHRITIS [None]
  - ARTHRODESIS [None]
